FAERS Safety Report 25854411 (Version 1)
Quarter: 2025Q3

REPORT INFORMATION
  Report Type: Spontaneous
  Country: US (occurrence: US)
  Receive Date: 20250927
  Receipt Date: 20250927
  Transmission Date: 20251020
  Serious: No
  Sender: STRIDES
  Company Number: US-STRIDES ARCOLAB LIMITED-2025SP008149

PATIENT
  Age: 66 Year
  Sex: Male

DRUGS (6)
  1. PREDNISOLONE [Suspect]
     Active Substance: PREDNISOLONE
     Indication: Metastatic malignant melanoma
     Route: 065
     Dates: start: 2020, end: 202006
  2. PREDNISOLONE [Suspect]
     Active Substance: PREDNISOLONE
     Indication: Intestinal metastasis
     Route: 065
  3. NIVOLUMAB [Suspect]
     Active Substance: NIVOLUMAB
     Indication: Metastatic malignant melanoma
     Route: 065
     Dates: start: 201904, end: 2019
  4. NIVOLUMAB [Suspect]
     Active Substance: NIVOLUMAB
     Indication: Intestinal metastasis
     Route: 065
     Dates: start: 2020, end: 202006
  5. NELVUTAMIG [Suspect]
     Active Substance: NELVUTAMIG
     Indication: Intestinal metastasis
     Route: 065
     Dates: start: 201904, end: 2019
  6. NELVUTAMIG [Suspect]
     Active Substance: NELVUTAMIG
     Indication: Metastatic malignant melanoma
     Route: 065
     Dates: start: 2020, end: 202006

REACTIONS (2)
  - Orthopnoea [Unknown]
  - Off label use [Unknown]

NARRATIVE: CASE EVENT DATE: 20200601
